FAERS Safety Report 6255900-7 (Version None)
Quarter: 2009Q3

REPORT INFORMATION
  Report Type: 
  Country: None (occurrence: None)
  Receive Date: 20090703
  Receipt Date: 20090622
  Transmission Date: 20100115
  Serious: Yes (Other)
  Sender: FDA-Public Use
  Company Number: GB-ELI_LILLY_AND_COMPANY-GB200906001072

PATIENT
  Age: 70 Year
  Sex: Female

DRUGS (3)
  1. GEMZAR [Suspect]
     Indication: PANCREATIC CARCINOMA METASTATIC
     Dosage: 1000 MG/M2, WEEKLY
     Route: 065
     Dates: start: 20060901, end: 20080101
  2. GEMZAR [Suspect]
     Dosage: UNK, OTHER (EVERY OTHER WEEK)
     Route: 065
  3. LENALIDOMIDE [Concomitant]
     Dosage: 20 MG, DAILY (1/D)
     Route: 048
     Dates: start: 20061101

REACTIONS (6)
  - CARBOHYDRATE ANTIGEN 19-9 INCREASED [None]
  - FATIGUE [None]
  - GENERAL PHYSICAL HEALTH DETERIORATION [None]
  - LUNG INFECTION [None]
  - MALAISE [None]
  - WEIGHT DECREASED [None]
